FAERS Safety Report 8838236 (Version 1)
Quarter: 2012Q4

REPORT INFORMATION
  Report Type: 
  Country: US (occurrence: US)
  Receive Date: 20121012
  Receipt Date: 20121012
  Transmission Date: 20130627
  Serious: Yes (Hospitalization)
  Sender: FDA-Public Use
  Company Number: US-ROCHE-1129041

PATIENT
  Age: 13 Year
  Sex: Male

DRUGS (3)
  1. NUTROPIN [Suspect]
     Indication: DWARFISM
  2. NUTROPIN [Suspect]
     Indication: DWARFISM
  3. NUTROPIN [Suspect]
     Indication: GROWTH HORMONE DEFICIENCY

REACTIONS (1)
  - Infectious mononucleosis [Unknown]
